FAERS Safety Report 4673115-0 (Version None)
Quarter: 2005Q2

REPORT INFORMATION
  Report Type: 
  Country: None (occurrence: None)
  Receive Date: 20050525
  Receipt Date: 20050512
  Transmission Date: 20051028
  Serious: Yes (Other)
  Sender: FDA-Public Use
  Company Number: FR-JNJFOC-20050503932

PATIENT
  Age: 36 Year
  Sex: Male

DRUGS (2)
  1. EPITOMAX [Suspect]
     Indication: EPILEPSY
     Dosage: 50MG MANE AND 100MG NOCTE
     Route: 049
  2. LAMOTRIGINE [Concomitant]
     Route: 065

REACTIONS (4)
  - ABDOMINAL PAIN [None]
  - PROSTATE CANCER [None]
  - PYREXIA [None]
  - TESTICULAR PAIN [None]
